FAERS Safety Report 9308568 (Version 1)
Quarter: 2013Q2

REPORT INFORMATION
  Report Type: Spontaneous
  Country: US (occurrence: US)
  Receive Date: 20130524
  Receipt Date: 20130524
  Transmission Date: 20140414
  Serious: Yes (Hospitalization, Other)
  Sender: FDA-Public Use
  Company Number: US-ELI_LILLY_AND_COMPANY-US201305005830

PATIENT
  Age: 68 Year
  Sex: Female
  Weight: 81.63 kg

DRUGS (1)
  1. HUMALOG LISPRO [Suspect]
     Dosage: UNK, UNKNOWN
     Route: 058

REACTIONS (7)
  - Blood glucose increased [Recovered/Resolved]
  - Diabetic ketoacidosis [Unknown]
  - Blood glucose increased [Unknown]
  - Vomiting [Unknown]
  - Fall [Unknown]
  - Movement disorder [Unknown]
  - Visual acuity reduced [Unknown]
